FAERS Safety Report 25158024 (Version 2)
Quarter: 2025Q2

REPORT INFORMATION
  Report Type: Report from Study
  Country: GB (occurrence: GB)
  Receive Date: 20250404
  Receipt Date: 20250410
  Transmission Date: 20250716
  Serious: No
  Sender: NOVARTIS
  Company Number: GB-002147023-NVSC2024GB071936

PATIENT
  Sex: Female

DRUGS (1)
  1. COSENTYX [Suspect]
     Active Substance: SECUKINUMAB
     Indication: Rheumatoid arthritis
     Dosage: 150 MG, QMO
     Route: 058
     Dates: start: 20240325

REACTIONS (7)
  - Pain [Unknown]
  - Nausea [Unknown]
  - Fatigue [Unknown]
  - Flatulence [Unknown]
  - Tooth fracture [Unknown]
  - Toothache [Unknown]
  - Off label use [Unknown]
